FAERS Safety Report 4974153-0 (Version None)
Quarter: 2006Q1

REPORT INFORMATION
  Report Type: 
  Country: None (occurrence: None)
  Receive Date: 20060130
  Receipt Date: 20050713
  Transmission Date: 20060701
  Serious: No
  Sender: FDA-Public Use
  Company Number: COT_0281_2005

PATIENT
  Age: 42 Year
  Sex: Male
  Weight: 84.8226 kg

DRUGS (19)
  1. VENTAVIS [Suspect]
     Indication: PULMONARY HYPERTENSION
     Dosage: 2.5 MCG ONCE IH
     Dates: start: 20050610, end: 20050610
  2. VENTAVIS [Suspect]
     Indication: PULMONARY HYPERTENSION
     Dosage: 5 MCG 6TO9X/DAY IH
     Dates: start: 20050610
  3. VENTAVIS [Suspect]
     Indication: PULMONARY HYPERTENSION
     Dosage: 5 MCG 6TO9X/DAY IH
     Dates: start: 20050510
  4. WARFARIN SODIUM [Concomitant]
  5. PREDNISONE [Concomitant]
  6. CALCIUM CARBONATE [Concomitant]
  7. MULTIVITAMIN [Concomitant]
  8. TRACLEER [Concomitant]
  9. FUROSEMIDE [Concomitant]
  10. NYSTATIN [Concomitant]
  11. BACTRIM DS [Concomitant]
  12. FOSAMAX [Concomitant]
  13. PLAQUENIL [Concomitant]
  14. AZATHIOPRINE [Concomitant]
  15. SILDENAFIL CITRATE [Concomitant]
  16. ZOCOR [Concomitant]
  17. FLOVENT [Concomitant]
  18. SEREVENT [Concomitant]
  19. COMBIVENT [Concomitant]

REACTIONS (1)
  - FATIGUE [None]
